FAERS Safety Report 16371678 (Version 6)
Quarter: 2019Q3

REPORT INFORMATION
  Report Type: Spontaneous
  Country: JP (occurrence: JP)
  Receive Date: 20190530
  Receipt Date: 20190701
  Transmission Date: 20191004
  Serious: Yes (Death, Hospitalization, Other)
  Sender: FDA-Public Use
  Company Number: PHJP2019JP005625

PATIENT
  Age: 69 Year
  Sex: Male

DRUGS (6)
  1. NEORAL [Suspect]
     Active Substance: CYCLOSPORINE
     Indication: NEPHROTIC SYNDROME
     Dosage: 200 MG, QD
     Route: 048
     Dates: start: 20150501, end: 20150513
  2. METHYLPREDNISOLONE. [Concomitant]
     Active Substance: METHYLPREDNISOLONE
     Indication: PRODUCT USED FOR UNKNOWN INDICATION
     Dosage: 500 MG, QD
     Route: 065
  3. NEORAL [Suspect]
     Active Substance: CYCLOSPORINE
     Dosage: 120 MG, UNK
     Route: 048
     Dates: start: 20190514
  4. NEORAL [Suspect]
     Active Substance: CYCLOSPORINE
     Dosage: 80 MG, UNK
     Route: 048
     Dates: start: 201509, end: 20151110
  5. PREDNISOLONE. [Concomitant]
     Active Substance: PREDNISOLONE
     Indication: PRODUCT USED FOR UNKNOWN INDICATION
     Dosage: 20 MG, QD
     Route: 048
  6. NEORAL [Suspect]
     Active Substance: CYCLOSPORINE
     Dosage: 120 MG, UNK
     Route: 048

REACTIONS (8)
  - Blood albumin decreased [Unknown]
  - Cholecystitis [Fatal]
  - Peritoneal tuberculosis [Fatal]
  - Gastrointestinal haemorrhage [Fatal]
  - Hypovolaemia [Unknown]
  - Renal impairment [Unknown]
  - Oedema [Unknown]
  - Cytomegalovirus infection [Fatal]

NARRATIVE: CASE EVENT DATE: 20150923
